FAERS Safety Report 19609145 (Version 1)
Quarter: 2021Q3

REPORT INFORMATION
  Report Type: Spontaneous
  Country: US (occurrence: US)
  Receive Date: 20210726
  Receipt Date: 20210726
  Transmission Date: 20211014
  Serious: Yes (Other)
  Sender: FDA-Public Use
  Company Number: US-ASTRAZENECA-2021A631721

PATIENT
  Sex: Female

DRUGS (2)
  1. BRILINTA [Suspect]
     Active Substance: TICAGRELOR
     Indication: MYOCARDIAL INFARCTION
     Dosage: UNKNOWN DOSE
     Route: 048
  2. BRILINTA [Suspect]
     Active Substance: TICAGRELOR
     Indication: STENT PLACEMENT
     Dosage: UNKNOWN DOSE
     Route: 048

REACTIONS (5)
  - Asthenia [Recovered/Resolved]
  - Internal haemorrhage [Recovered/Resolved]
  - Haematochezia [Recovered/Resolved]
  - Haemoglobin decreased [Recovered/Resolved]
  - Dizziness [Recovered/Resolved]
